FAERS Safety Report 9278914 (Version 2)
Quarter: 2013Q3

REPORT INFORMATION
  Report Type: Report from Study
  Country: DE (occurrence: DE)
  Receive Date: 20130508
  Receipt Date: 20130717
  Transmission Date: 20140515
  Serious: Yes (Hospitalization)
  Sender: FDA-Public Use
  Company Number: DE-CELGENEUS-062-C4047-13050915

PATIENT
  Age: 64 Year
  Sex: Female
  Weight: 65 kg

DRUGS (7)
  1. CC-4047 [Suspect]
     Indication: PLASMA CELL MYELOMA
     Dosage: 4 MILLIGRAM
     Route: 048
     Dates: start: 20130328
  2. CC-4047 [Suspect]
     Dosage: 4 MILLIGRAM
     Route: 048
     Dates: start: 20130425, end: 20130506
  3. CC-4047 [Suspect]
     Route: 048
     Dates: start: 20130521
  4. DEXAMETHASONE [Suspect]
     Indication: PLASMA CELL MYELOMA
     Route: 065
     Dates: start: 20130328, end: 20130424
  5. DEXAMETHASONE [Suspect]
     Route: 065
     Dates: start: 20130425, end: 20130506
  6. DEXAMETHASONE [Suspect]
     Route: 065
     Dates: start: 20130521
  7. ASA [Concomitant]
     Indication: THROMBOSIS PROPHYLAXIS
     Dosage: 100 MILLIGRAM
     Route: 048
     Dates: start: 20130318, end: 20130506

REACTIONS (1)
  - Appendicitis [Recovered/Resolved]
